FAERS Safety Report 19809302 (Version 1)
Quarter: 2021Q3

REPORT INFORMATION
  Report Type: Spontaneous
  Country: US (occurrence: US)
  Receive Date: 20210909
  Receipt Date: 20210909
  Transmission Date: 20211014
  Serious: No
  Sender: FDA-Public Use
  Company Number: US-ORGANON-O2108USA002209

PATIENT
  Sex: Female

DRUGS (16)
  1. NORETHINDRONE ACETATE. [Concomitant]
     Active Substance: NORETHINDRONE ACETATE
  2. SERTRALINE [Concomitant]
     Active Substance: SERTRALINE HYDROCHLORIDE
  3. ESTRADIOL. [Concomitant]
     Active Substance: ESTRADIOL
  4. PREVIDENT 5000 PLUS SPEARMINT [Concomitant]
     Active Substance: SODIUM FLUORIDE
  5. ESTRADIOL. [Concomitant]
     Active Substance: ESTRADIOL
  6. LETROZOLE. [Concomitant]
     Active Substance: LETROZOLE
  7. PROGESTERONE. [Suspect]
     Active Substance: PROGESTERONE
     Dosage: UNK
  8. MEDROXYPROGESTERONE ACETATE. [Concomitant]
     Active Substance: MEDROXYPROGESTERONE ACETATE
  9. OMEPRAZOLE. [Concomitant]
     Active Substance: OMEPRAZOLE
  10. DOXYCLINE [DOXYCYCLINE PHOSPHATE] [Concomitant]
  11. MISOPROSTOL. [Concomitant]
     Active Substance: MISOPROSTOL
  12. CYCLOBENZAPRINUM [Concomitant]
  13. LORAZEPAM. [Concomitant]
     Active Substance: LORAZEPAM
  14. OVIDRELLE [Concomitant]
  15. PHENTERMINE. [Concomitant]
     Active Substance: PHENTERMINE
  16. FOLLISTIM AQ [Suspect]
     Active Substance: FOLLITROPIN
     Indication: ASSISTED REPRODUCTIVE TECHNOLOGY
     Dosage: 75?450 UNITS (STRENGTH 600 IU/0.72ML)
     Route: 058
     Dates: start: 20200801

REACTIONS (1)
  - Pruritus [Unknown]
